FAERS Safety Report 7601277-1 (Version None)
Quarter: 2011Q3

REPORT INFORMATION
  Report Type: 
  Country: None (occurrence: None)
  Receive Date: 20110711
  Receipt Date: 20110627
  Transmission Date: 20111222
  Serious: Yes (Other)
  Sender: FDA-Public Use
  Company Number: PHHY2011GB57049

PATIENT
  Age: 28 Year
  Sex: Female

DRUGS (2)
  1. CLOZAPINE [Suspect]
     Indication: HALLUCINATION, AUDITORY
  2. OLANZAPINE [Concomitant]

REACTIONS (2)
  - NEUTROPENIA [None]
  - PSYCHOTIC DISORDER [None]
